FAERS Safety Report 10188429 (Version 1)
Quarter: 2014Q2

REPORT INFORMATION
  Report Type: Spontaneous
  Country: CH (occurrence: CH)
  Receive Date: 20140522
  Receipt Date: 20140522
  Transmission Date: 20141212
  Serious: Yes (Life-Threatening, Hospitalization)
  Sender: FDA-Public Use
  Company Number: CH-SA-2014SA060639

PATIENT
  Age: 68 Year
  Sex: Male

DRUGS (11)
  1. ARAVA [Suspect]
     Indication: RHEUMATOID ARTHRITIS
     Route: 048
     Dates: start: 201309, end: 20140426
  2. SPIRICORT [Suspect]
     Indication: RHEUMATOID ARTHRITIS
     Dosage: .5 PER 1 DAY
     Route: 048
     Dates: start: 201309
  3. MABTHERA [Suspect]
     Indication: RHEUMATOID ARTHRITIS
     Dosage: FORM-INFUSION AMPULES
     Route: 042
     Dates: start: 201311, end: 201311
  4. ASPIRIN CARDIO [Concomitant]
     Dosage: STREBGTH: 100 MG
     Route: 048
  5. VALSARTAN [Concomitant]
     Route: 048
  6. ATORVASTATIN [Concomitant]
     Route: 048
  7. DIAMICRON [Concomitant]
     Indication: TYPE 2 DIABETES MELLITUS
     Route: 048
  8. GALVUMET [Concomitant]
     Indication: TYPE 2 DIABETES MELLITUS
     Dosage: 1 DF = 50/1000 MG
     Route: 048
  9. CALCIMAGON-D3 [Concomitant]
     Route: 048
  10. PANTOPRAZOLE [Concomitant]
     Indication: GASTRITIS PROPHYLAXIS
     Route: 048
  11. MAGNESIOCARD [Concomitant]
     Route: 048

REACTIONS (2)
  - Infectious pleural effusion [Not Recovered/Not Resolved]
  - Septic shock [Not Recovered/Not Resolved]
